FAERS Safety Report 10149066 (Version 1)
Quarter: 2014Q2

REPORT INFORMATION
  Report Type: Spontaneous
  Country: FR (occurrence: None)
  Receive Date: 20140430
  Receipt Date: 20140430
  Transmission Date: 20141212
  Serious: Yes (Hospitalization)
  Sender: FDA-Public Use
  Company Number: IMP_07622_2014

PATIENT
  Age: 44 Year
  Sex: Female

DRUGS (3)
  1. ANAGRELIDE (ANAGRELIDE) [Suspect]
     Indication: JANUS KINASE 2 MUTATION
     Dates: start: 201204, end: 2012
  2. ANAGRELIDE (ANAGRELIDE) [Suspect]
     Indication: ESSENTIAL THROMBOCYTHAEMIA
     Dates: start: 201204, end: 2012
  3. ASPIRIN [Concomitant]

REACTIONS (3)
  - Coronary artery stenosis [None]
  - Acute myocardial infarction [None]
  - Myocarditis [None]
